FAERS Safety Report 5822189-X (Version None)
Quarter: 2008Q3

REPORT INFORMATION
  Report Type: 
  Country: None (occurrence: None)
  Receive Date: 20080725
  Receipt Date: 20080716
  Transmission Date: 20090109
  Serious: Yes (Hospitalization)
  Sender: FDA-Public Use
  Company Number: ES-BAXTER-2008BH007472

PATIENT
  Age: 77 Year
  Sex: Female

DRUGS (6)
  1. GAMMAGARD LIQUID [Suspect]
     Indication: AUTOIMMUNE THROMBOCYTOPENIA
     Route: 042
     Dates: start: 20080509, end: 20080512
  2. OMEPRAZOLE [Concomitant]
     Route: 048
     Dates: start: 20080507
  3. PREDNISONE TAB [Concomitant]
     Route: 048
     Dates: start: 20080507, end: 20080520
  4. ESCITALOPRAM [Concomitant]
     Route: 048
     Dates: start: 20080507, end: 20080508
  5. ORFIDAL [Concomitant]
     Route: 048
     Dates: start: 20080507
  6. OSTINE [Concomitant]
     Route: 048
     Dates: start: 20080507

REACTIONS (1)
  - HAEMOLYSIS [None]
